FAERS Safety Report 5102446-5 (Version None)
Quarter: 2006Q3

REPORT INFORMATION
  Report Type: 
  Country: None (occurrence: None)
  Receive Date: 20060912
  Receipt Date: 20060831
  Transmission Date: 20061208
  Serious: Yes (Other)
  Sender: FDA-Public Use
  Company Number: AU-BRISTOL-MYERS SQUIBB COMPANY-13501804

PATIENT

DRUGS (1)
  1. HOLOXAN [Suspect]

REACTIONS (1)
  - RENAL FAILURE ACUTE [None]
